FAERS Safety Report 12798424 (Version 1)
Quarter: 2016Q3

REPORT INFORMATION
  Report Type: Spontaneous
  Country: US (occurrence: US)
  Receive Date: 20160930
  Receipt Date: 20160930
  Transmission Date: 20161109
  Serious: No
  Sender: FDA-Public Use
  Company Number: US-ASTRAZENECA-2016SE97970

PATIENT
  Age: 26444 Day
  Sex: Male
  Weight: 111.1 kg

DRUGS (6)
  1. BYDUREON [Suspect]
     Active Substance: EXENATIDE
     Indication: TYPE 2 DIABETES MELLITUS
     Route: 058
     Dates: start: 201608
  2. TOLTERODINE [Concomitant]
     Active Substance: TOLTERODINE
     Indication: MICTURITION DISORDER
     Dosage: 5.0MG UNKNOWN
     Route: 048
     Dates: start: 2013
  3. CYMBALTA [Concomitant]
     Active Substance: DULOXETINE HYDROCHLORIDE
     Indication: NEUROPATHY PERIPHERAL
     Dosage: 60.0MG UNKNOWN
     Route: 048
     Dates: start: 2013
  4. ALLOPURINOL. [Concomitant]
     Active Substance: ALLOPURINOL
     Indication: RENAL DISORDER
     Dosage: DAILY
     Route: 048
     Dates: start: 2006
  5. METFORMIN [Concomitant]
     Active Substance: METFORMIN HYDROCHLORIDE
     Indication: TYPE 2 DIABETES MELLITUS
     Dosage: 1000.0MG UNKNOWN
     Route: 048
  6. METOPROLOL. [Suspect]
     Active Substance: METOPROLOL
     Indication: GAIT DISTURBANCE
     Route: 048
     Dates: start: 2013

REACTIONS (3)
  - Blood glucose increased [Unknown]
  - Product quality issue [Unknown]
  - Drug dose omission [Unknown]

NARRATIVE: CASE EVENT DATE: 20160914
